FAERS Safety Report 4812991-5 (Version None)
Quarter: 2005Q4

REPORT INFORMATION
  Report Type: 
  Country: None (occurrence: None)
  Receive Date: 20051028
  Receipt Date: 20050531
  Transmission Date: 20060501
  Serious: No
  Sender: FDA-Public Use
  Company Number: US-GLAXOSMITHKLINE-A0560605A

PATIENT
  Age: 41 Year
  Sex: Female

DRUGS (1)
  1. ADVAIR DISKUS 100/50 [Suspect]
     Indication: BRONCHITIS
     Dosage: 1PUFF PER DAY
     Route: 055
     Dates: start: 20050503, end: 20050503

REACTIONS (3)
  - DYSPNOEA [None]
  - SWELLING FACE [None]
  - THROAT TIGHTNESS [None]
